FAERS Safety Report 20767302 (Version 1)
Quarter: 2022Q2

REPORT INFORMATION
  Report Type: Spontaneous
  Country: DE (occurrence: DE)
  Receive Date: 20220429
  Receipt Date: 20220429
  Transmission Date: 20220721
  Serious: Yes (Other)
  Sender: FDA-Public Use
  Company Number: None

PATIENT
  Age: 72 Year
  Sex: Male

DRUGS (3)
  1. GLIMEPIRIDE [Suspect]
     Active Substance: GLIMEPIRIDE
     Dosage: 2 MILLIGRAM DAILY; 1-0-0, STRENGTH: 2 MG,
     Route: 048
  2. TORSEMIDE [Suspect]
     Active Substance: TORSEMIDE
     Dosage: 5 MILLIGRAM DAILY; 1-0-0, STRENGTH: 5 MG
     Route: 048
  3. PANTOPRAZOLE SODIUM [Concomitant]
     Active Substance: PANTOPRAZOLE SODIUM
     Dosage: 40 MILLIGRAM DAILY; 1-0-0, STRENGTH: 40 MG
     Route: 048

REACTIONS (1)
  - Hypoglycaemia [Recovered/Resolved]

NARRATIVE: CASE EVENT DATE: 20220125
